FAERS Safety Report 4948185-2 (Version None)
Quarter: 2006Q1

REPORT INFORMATION
  Report Type: 
  Country: None (occurrence: None)
  Receive Date: 20060313
  Receipt Date: 20060308
  Transmission Date: 20060701
  Serious: Yes (Other)
  Sender: FDA-Public Use
  Company Number: S06-USA-00384-01

PATIENT
  Age: 8 Year
  Sex: Female

DRUGS (2)
  1. LEXAPRO [Suspect]
     Indication: GENERALISED ANXIETY DISORDER
     Dosage: 7.5 MG QD PO
     Route: 048
     Dates: start: 20051001, end: 20060202
  2. LEXAPRO [Suspect]
     Indication: GENERALISED ANXIETY DISORDER
     Dosage: 5 MG QD PO
     Route: 048
     Dates: start: 20060203

REACTIONS (1)
  - DEPRESSION [None]
